FAERS Safety Report 19594499 (Version 2)
Quarter: 2021Q4

REPORT INFORMATION
  Report Type: Spontaneous
  Country: GB (occurrence: GB)
  Receive Date: 20210722
  Receipt Date: 20211025
  Transmission Date: 20220303
  Serious: Yes (Hospitalization, Disabling)
  Sender: FDA-Public Use
  Company Number: GB-MYLANLABS-2021M1043755

PATIENT
  Age: 52 Year
  Sex: Male

DRUGS (2)
  1. CLOZARIL [Suspect]
     Active Substance: CLOZAPINE
     Indication: Schizophrenia
     Dosage: UNK
     Route: 048
     Dates: start: 20210611, end: 20210702
  2. CLOZARIL [Suspect]
     Active Substance: CLOZAPINE
     Dosage: UNK
     Route: 048
     Dates: start: 20210721, end: 2021

REACTIONS (2)
  - Malaise [Unknown]
  - Hospitalisation [Unknown]

NARRATIVE: CASE EVENT DATE: 20210101
